FAERS Safety Report 16993276 (Version 1)
Quarter: 2019Q4

REPORT INFORMATION
  Report Type: Spontaneous
  Country: BR (occurrence: BR)
  Receive Date: 20191105
  Receipt Date: 20191105
  Transmission Date: 20200122
  Serious: Yes (Hospitalization, Other)
  Sender: FDA-Public Use
  Company Number: BR-AMGEN-BRASP2019181335

PATIENT
  Age: 40 Year
  Sex: Female
  Weight: 64 kg

DRUGS (3)
  1. NEULASTIM [Suspect]
     Active Substance: PEGFILGRASTIM
     Dosage: 6 MILLILITER, 24 HOURS AFTER CHEMO
     Route: 058
     Dates: end: 20191010
  2. NEULASTIM [Suspect]
     Active Substance: PEGFILGRASTIM
     Dosage: 6 MILLILITER, 24 HOURS AFTER CHEMO
     Route: 058
  3. NEULASTIM [Suspect]
     Active Substance: PEGFILGRASTIM
     Indication: NEUTROPENIA
     Dosage: 6 MILLILITER, 24 HOURS AFTER CHEMO
     Route: 058
     Dates: start: 20190912

REACTIONS (2)
  - Drug ineffective [Unknown]
  - Febrile neutropenia [Recovered/Resolved]

NARRATIVE: CASE EVENT DATE: 20190912
